FAERS Safety Report 5425039-9 (Version None)
Quarter: 2007Q3

REPORT INFORMATION
  Report Type: 
  Country: None (occurrence: None)
  Receive Date: 20070731
  Receipt Date: 20070621
  Transmission Date: 20080115
  Serious: No
  Sender: FDA-Public Use
  Company Number: US200706005127

PATIENT
  Age: 35 Year
  Sex: Female

DRUGS (6)
  1. BYETTA [Suspect]
     Indication: TYPE 2 DIABETES MELLITUS
     Dosage: 5 UG, 2/D, SUBCUTANEOUS
     Route: 058
     Dates: start: 20070615
  2. NOVOLOG [Concomitant]
  3. LANTUS [Concomitant]
  4. GLUCOPHAE (METFORMIN) [Concomitant]
  5. DRUG USED IN DIABETES [Concomitant]
  6. INSULIN, REGULAR (INSULIN) [Concomitant]

REACTIONS (5)
  - BLOOD GLUCOSE INCREASED [None]
  - DECREASED APPETITE [None]
  - DIARRHOEA [None]
  - HEADACHE [None]
  - MALAISE [None]
